FAERS Safety Report 8210645-9 (Version None)
Quarter: 2012Q1

REPORT INFORMATION
  Report Type: 
  Country: None (occurrence: None)
  Receive Date: 20120314
  Receipt Date: 20120302
  Transmission Date: 20120608
  Serious: No
  Sender: FDA-Public Use
  Company Number: US-B.I. PHARMACEUTICALS,INC./RIDGEFIELD-2012-BP-04030BP

PATIENT
  Age: 83 Year
  Sex: Male

DRUGS (10)
  1. TAMSULOSIN HCL [Concomitant]
  2. SIMVASTATIN [Concomitant]
  3. ASPIRIN [Concomitant]
  4. DIGOXON [Concomitant]
  5. PRADAXA [Suspect]
     Indication: ATRIAL FIBRILLATION
     Dosage: 300 MG
     Route: 048
     Dates: start: 20100101
  6. MIRTAZAPINE [Concomitant]
  7. SAW PALMETTO [Concomitant]
  8. FELODIPINE [Concomitant]
  9. AVODART [Concomitant]
  10. TRAMADOL HCL [Concomitant]
     Indication: PAIN

REACTIONS (3)
  - INCONTINENCE [None]
  - DELIRIUM [None]
  - DEMENTIA [None]
